FAERS Safety Report 10096261 (Version 2)
Quarter: 2014Q2

REPORT INFORMATION
  Report Type: Spontaneous
  Country: US (occurrence: US)
  Receive Date: 20140422
  Receipt Date: 20140422
  Transmission Date: 20141212
  Serious: No
  Sender: FDA-Public Use
  Company Number: US-GILEAD-2012-0059486

PATIENT
  Sex: Male

DRUGS (6)
  1. LETAIRIS [Suspect]
     Indication: PULMONARY HYPERTENSION
     Dosage: 5 MG, UNK
     Route: 048
     Dates: start: 20120424, end: 20120808
  2. PREDNISONE [Concomitant]
  3. OXYGEN [Concomitant]
  4. PROVENTIL HFA                      /00139501/ [Concomitant]
  5. DOXAZOSIN [Concomitant]
  6. REVATIO [Concomitant]

REACTIONS (1)
  - Rash pruritic [Unknown]
